FAERS Safety Report 13020809 (Version 1)
Quarter: 2016Q4

REPORT INFORMATION
  Report Type: Spontaneous
  Country: US (occurrence: US)
  Receive Date: 20161212
  Receipt Date: 20161212
  Transmission Date: 20170207
  Serious: No
  Sender: FDA-Public Use
  Company Number: None

PATIENT
  Age: 40 Year
  Sex: Female

DRUGS (1)
  1. STELARA [Suspect]
     Active Substance: USTEKINUMAB
     Indication: PSORIASIS

REACTIONS (4)
  - Fatigue [None]
  - Nausea [None]
  - Psoriatic arthropathy [None]
  - Arthralgia [None]

NARRATIVE: CASE EVENT DATE: 20161209
